FAERS Safety Report 25905958 (Version 1)
Quarter: 2025Q4

REPORT INFORMATION
  Report Type: Spontaneous
  Country: EU (occurrence: EU)
  Receive Date: 20251010
  Receipt Date: 20251010
  Transmission Date: 20260118
  Serious: Yes (Life-Threatening, Other)
  Sender: BAUSCH AND LOMB
  Company Number: EU-BAUSCH-BH-2025-018555

PATIENT
  Age: 32 Year
  Sex: Male
  Weight: 76 kg

DRUGS (3)
  1. RIFAXIMIN [Suspect]
     Active Substance: RIFAXIMIN
     Indication: Irritable bowel syndrome
     Route: 048
     Dates: start: 20250915, end: 20250917
  2. RIFAXIMIN [Suspect]
     Active Substance: RIFAXIMIN
     Indication: Gastrointestinal microorganism overgrowth
  3. URSODIOL [Concomitant]
     Active Substance: URSODIOL
     Indication: Cholestasis
     Dosage: 250 MG (MORNING) - 500 MG (NIGHT),INDICATION CHOLESTATIC SYNDROME
     Route: 048
     Dates: start: 20240701, end: 20250917

REACTIONS (3)
  - Suicidal ideation [Not Recovered/Not Resolved]
  - Anxiety [Not Recovered/Not Resolved]
  - Depression [Not Recovered/Not Resolved]

NARRATIVE: CASE EVENT DATE: 20250915
